FAERS Safety Report 21466126 (Version 2)
Quarter: 2022Q4

REPORT INFORMATION
  Report Type: Spontaneous
  Country: US (occurrence: US)
  Receive Date: 20221017
  Receipt Date: 20221209
  Transmission Date: 20230113
  Serious: Yes (Death, Other)
  Sender: FDA-Public Use
  Company Number: US-PROGENICS PHARMACEUTICALS/LANTHEUS HOLDINGS-LMI-2022-01219

PATIENT
  Age: 74 Year
  Sex: Male

DRUGS (6)
  1. AZEDRA [Suspect]
     Active Substance: IOBENGUANE I-131
     Indication: Paraganglion neoplasm malignant
     Dosage: 6 MILLICURIE
     Route: 042
     Dates: start: 20220608, end: 20220608
  2. AZEDRA [Suspect]
     Active Substance: IOBENGUANE I-131
     Dosage: 177.6 MILLICURIE
     Route: 042
     Dates: start: 20220620, end: 20220620
  3. AMIODARONE [Concomitant]
     Active Substance: AMIODARONE
     Indication: Product used for unknown indication
     Dosage: UNK
  4. AMLODIPINE [Concomitant]
     Active Substance: AMLODIPINE BESYLATE
     Indication: Product used for unknown indication
     Dosage: UNK
  5. ATORVASTATIN [Concomitant]
     Active Substance: ATORVASTATIN
     Indication: Product used for unknown indication
     Dosage: UNK
  6. METFORMIN [Concomitant]
     Active Substance: METFORMIN HYDROCHLORIDE
     Indication: Product used for unknown indication
     Dosage: UNK

REACTIONS (3)
  - Death [Fatal]
  - Aspiration [Not Recovered/Not Resolved]
  - Cardio-respiratory arrest [Not Recovered/Not Resolved]

NARRATIVE: CASE EVENT DATE: 20220622
